FAERS Safety Report 5601779-3 (Version None)
Quarter: 2008Q1

REPORT INFORMATION
  Report Type: 
  Country: None (occurrence: None)
  Receive Date: 20080124
  Receipt Date: 20080123
  Transmission Date: 20080703
  Serious: Yes (Hospitalization)
  Sender: FDA-Public Use
  Company Number: FR-MERCK-0801FRA00071

PATIENT
  Age: 45 Year
  Sex: Male

DRUGS (3)
  1. ISENTRESS [Suspect]
     Indication: HIV INFECTION
     Route: 048
     Dates: start: 20071010, end: 20071120
  2. EMTRICITABINE AND TENOFOVIR DISOPROXIL FUMARATE [Suspect]
     Indication: HIV INFECTION
     Route: 048
     Dates: start: 20071010, end: 20071120
  3. ETRAVIRINE [Suspect]
     Indication: HIV INFECTION
     Route: 048
     Dates: start: 20071010, end: 20071120

REACTIONS (1)
  - PANCREATITIS [None]
